FAERS Safety Report 22296308 (Version 1)
Quarter: 2023Q2

REPORT INFORMATION
  Report Type: Spontaneous
  Country: US (occurrence: US)
  Receive Date: 20230508
  Receipt Date: 20230508
  Transmission Date: 20230722
  Serious: No
  Sender: FDA-Public Use
  Company Number: US-Millicent Holdings Ltd.-MILL20230117

PATIENT
  Age: 56 Year
  Sex: Female

DRUGS (1)
  1. INTRAROSA [Suspect]
     Active Substance: PRASTERONE
     Indication: Product used for unknown indication
     Dosage: UNKNOWN
     Route: 067

REACTIONS (5)
  - Vulvovaginal pain [Recovered/Resolved]
  - Vulvovaginal burning sensation [Recovered/Resolved]
  - Vaginal odour [Recovered/Resolved]
  - Sensory disturbance [Not Recovered/Not Resolved]
  - Product packaging issue [Unknown]

NARRATIVE: CASE EVENT DATE: 20230401
